FAERS Safety Report 6010294-7 (Version None)
Quarter: 2008Q4

REPORT INFORMATION
  Report Type: 
  Country: None (occurrence: None)
  Receive Date: 20081218
  Receipt Date: 20080429
  Transmission Date: 20090506
  Serious: No
  Sender: FDA-Public Use
  Company Number: A0726136A

PATIENT
  Sex: Female

DRUGS (2)
  1. FLONASE [Suspect]
     Indication: DRUG USE FOR UNKNOWN INDICATION
     Route: 045
     Dates: start: 20080428
  2. VALTREX [Suspect]
     Route: 048
     Dates: start: 20080428

REACTIONS (3)
  - DIZZINESS [None]
  - HEADACHE [None]
  - MOUTH ULCERATION [None]
